FAERS Safety Report 10053121 (Version 3)
Quarter: 2014Q2

REPORT INFORMATION
  Report Type: Report from Study
  Country: US (occurrence: US)
  Receive Date: 20140402
  Receipt Date: 20140411
  Transmission Date: 20141212
  Serious: Yes (Death, Hospitalization, Other)
  Sender: FDA-Public Use
  Company Number: PHHY2014US024865

PATIENT
  Age: 59 Year
  Sex: Female

DRUGS (11)
  1. EVEROLIMUS [Suspect]
     Indication: PERIPHERAL NERVE SHEATH TUMOUR MALIGNANT
     Dosage: 10 MG, DAILY
     Route: 048
     Dates: start: 20140209
  2. EVEROLIMUS [Suspect]
     Indication: OFF LABEL USE
     Dosage: 10 MG, DAILY
     Dates: start: 20140306
  3. BEVACIZUMAB [Suspect]
     Indication: PERIPHERAL NERVE SHEATH TUMOUR MALIGNANT
     Dosage: 10 MG/KG, UNK
     Route: 042
     Dates: start: 20140209
  4. ATIVAN [Concomitant]
  5. BACTRIM [Concomitant]
  6. HYDROCHLOROTHIAZIDE [Concomitant]
  7. ONDANSETRON HYDROCHLORIDE [Concomitant]
  8. OXYCODONE [Concomitant]
  9. OXYCONTIN [Concomitant]
  10. PROCHLORPERAZINE MALEATE [Concomitant]
  11. ESCITALOPRAM OXALATE [Concomitant]

REACTIONS (12)
  - Motor dysfunction [Fatal]
  - Peripheral nerve sheath tumour malignant [Fatal]
  - Spinal cord compression [Fatal]
  - Wound decomposition [Unknown]
  - Erythema [Unknown]
  - Secretion discharge [Unknown]
  - Neurological decompensation [Unknown]
  - Asthenia [Unknown]
  - Gait disturbance [Unknown]
  - Hypoaesthesia [Unknown]
  - Pollakiuria [Unknown]
  - Spinal cord oedema [Unknown]
